FAERS Safety Report 18110157 (Version 1)
Quarter: 2020Q3

REPORT INFORMATION
  Report Type: Spontaneous
  Country: US (occurrence: US)
  Receive Date: 20200804
  Receipt Date: 20200804
  Transmission Date: 20201103
  Serious: No
  Sender: FDA-Public Use
  Company Number: US-GLAXOSMITHKLINE-US2020143942

PATIENT
  Age: 60 Year
  Sex: Female

DRUGS (1)
  1. FLONASE ALLERGY RELIEF [Suspect]
     Active Substance: FLUTICASONE PROPIONATE
     Indication: HYPERSENSITIVITY
     Dosage: UNK
     Dates: start: 20200624, end: 20200714

REACTIONS (5)
  - Heart rate irregular [Recovered/Resolved]
  - Palpitations [Recovered/Resolved]
  - Candida infection [Unknown]
  - Sinusitis [Unknown]
  - Sinus pain [Unknown]
